FAERS Safety Report 5493239-8 (Version None)
Quarter: 2007Q4

REPORT INFORMATION
  Report Type: 
  Country: None (occurrence: None)
  Receive Date: 20071022
  Receipt Date: 20071022
  Transmission Date: 20080405
  Serious: Yes (Other)
  Sender: FDA-Public Use
  Company Number: None

PATIENT
  Sex: Female
  Weight: 90 kg

DRUGS (5)
  1. COPAXONE [Suspect]
     Indication: MULTIPLE SCLEROSIS
     Dosage: 1 ML OF 20 MG 1 QD SQ
     Route: 058
     Dates: start: 20070703, end: 20071007
  2. WELLBUTRIN XL [Concomitant]
  3. DIAZEPAM [Concomitant]
  4. VIT D + CALCIUM [Concomitant]
  5. TRAMADOL HCL [Concomitant]

REACTIONS (10)
  - BLOOD PRESSURE IMMEASURABLE [None]
  - CHEST PAIN [None]
  - DYSPNOEA [None]
  - ERYTHEMA [None]
  - FAECAL INCONTINENCE [None]
  - FLUSHING [None]
  - MUSCULAR WEAKNESS [None]
  - PAIN IN EXTREMITY [None]
  - SKIN DISCOLOURATION [None]
  - THROAT TIGHTNESS [None]
